FAERS Safety Report 5606572-3 (Version None)
Quarter: 2008Q1

REPORT INFORMATION
  Report Type: 
  Country: None (occurrence: None)
  Receive Date: 20080125
  Receipt Date: 20080121
  Transmission Date: 20080703
  Serious: Yes (Hospitalization, Disabling, Other)
  Sender: FDA-Public Use
  Company Number: 163-21880-07100618

PATIENT
  Age: 59 Year
  Sex: Female

DRUGS (12)
  1. REVLIMID [Suspect]
     Indication: MULTIPLE MYELOMA
     Dosage: 25 MG, 1 IN 1 D, ORAL
     Route: 048
     Dates: start: 20070701, end: 20070801
  2. MIRALAX [Concomitant]
  3. NEXIUM [Concomitant]
  4. SEROQUEL [Concomitant]
  5. ALPRAZOLAM [Concomitant]
  6. ANTIVERT (MECLOZINE HYDROCHLORIDE) [Concomitant]
  7. COUMADIN [Concomitant]
  8. MULTI-VITAMINS [Concomitant]
  9. LEXAPRIL (ESCITALOPRAM OXALATE) [Concomitant]
  10. DECADRON [Concomitant]
  11. ASPARA (TROMCARDIN) (POWDER) [Concomitant]
  12. AMBROLOSE (AMBROXOL HYDROCHLORIDE) [Concomitant]

REACTIONS (5)
  - ANAEMIA [None]
  - BLOOD PRESSURE INCREASED [None]
  - CANDIDIASIS [None]
  - DEEP VEIN THROMBOSIS [None]
  - STEVENS-JOHNSON SYNDROME [None]
